FAERS Safety Report 4731655-X (Version None)
Quarter: 2005Q3

REPORT INFORMATION
  Report Type: 
  Country: None (occurrence: None)
  Receive Date: 20050725
  Receipt Date: 20041216
  Transmission Date: 20060218
  Serious: Yes (Life-Threatening, Disabling)
  Sender: FDA-Public Use
  Company Number: WAES 0412USA02075

PATIENT
  Age: 53 Year
  Sex: Female

DRUGS (3)
  1. VIOXX [Suspect]
     Indication: ANALGESIC EFFECT
     Dosage: 25 MG/PRN/PO
     Route: 048
     Dates: start: 20010101
  2. VIOXX [Suspect]
     Indication: ARTHRITIS
     Dosage: 25 MG/PRN/PO
     Route: 048
     Dates: start: 20010101
  3. PREMARIN [Concomitant]

REACTIONS (2)
  - ABDOMINAL PAIN [None]
  - ABDOMINAL PAIN UPPER [None]
